FAERS Safety Report 10096735 (Version 1)
Quarter: 2014Q2

REPORT INFORMATION
  Report Type: Spontaneous
  Country: QA (occurrence: QA)
  Receive Date: 20140422
  Receipt Date: 20140422
  Transmission Date: 20141212
  Serious: Yes (Other)
  Sender: FDA-Public Use
  Company Number: PHHY2014QA047006

PATIENT
  Age: 75 Year
  Sex: Female

DRUGS (13)
  1. HYDRALAZINE [Suspect]
     Indication: CONVULSION
     Dosage: 50 MG, TID
  2. HYDRALAZINE [Suspect]
     Indication: HYPERTENSION
     Dosage: 25 MG, TID
  3. METOPROLOL [Suspect]
     Indication: BLOOD PRESSURE INCREASED
     Dosage: 25 MG
  4. NIFEDIPINE [Suspect]
     Indication: BLOOD PRESSURE INCREASED
     Dosage: 20 MG
     Route: 048
  5. PERINDOPRIL [Suspect]
     Indication: BLOOD PRESSURE INCREASED
     Dosage: 2.5 MG, UNK
  6. PERINDOPRIL [Suspect]
     Dosage: 7.5 MG, PER DAY
  7. POTASSIUM CHLORIDE [Concomitant]
     Indication: HYPOKALAEMIA
     Dosage: UNK
     Route: 048
  8. POTASSIUM CHLORIDE [Concomitant]
     Dosage: UNK
     Route: 042
  9. AMLODIPINE [Concomitant]
     Indication: BLOOD PRESSURE INCREASED
     Dosage: 5 MG, PER DAY
  10. VALPROIC ACID [Concomitant]
     Indication: CONVULSION
     Dosage: 100 MG PER HOUR
     Route: 042
  11. VALPROIC ACID [Concomitant]
     Route: 048
  12. ISOSORBIDE DINITRATE [Concomitant]
     Indication: BLOOD PRESSURE INCREASED
     Dosage: 25 UG PER MIN
     Route: 042
  13. ISOSORBIDE DINITRATE [Concomitant]
     Dosage: 175 UG, PER MIN
     Route: 042

REACTIONS (9)
  - Toxic epidermal necrolysis [Recovered/Resolved]
  - Rash macular [Recovered/Resolved]
  - Skin lesion [Recovered/Resolved]
  - Generalised oedema [Recovered/Resolved]
  - Rash [Recovered/Resolved]
  - Rash erythematous [Recovered/Resolved]
  - Skin plaque [Recovered/Resolved]
  - Dermatitis bullous [Recovered/Resolved]
  - Drug ineffective [Unknown]
